FAERS Safety Report 8997463 (Version 1)
Quarter: 2013Q1

REPORT INFORMATION
  Report Type: Spontaneous
  Country: US (occurrence: US)
  Receive Date: 20130104
  Receipt Date: 20130104
  Transmission Date: 20140127
  Serious: Yes (Hospitalization)
  Sender: FDA-Public Use
  Company Number: US-MERCK-1301USA000932

PATIENT
  Age: 9 Year
  Sex: Male

DRUGS (4)
  1. MONTELUKAST SODIUM [Suspect]
     Dosage: UNK TAB, UNK
     Route: 048
  2. FLOVENT [Suspect]
     Dosage: 88 MICROGRAM, BID
     Route: 045
  3. FATTY ACIDS (UNSPECIFIED) [Concomitant]
  4. NUTRITIONAL SUPPLEMENTS [Concomitant]

REACTIONS (2)
  - Tourette^s disorder [Unknown]
  - Paraesthesia [Unknown]
